FAERS Safety Report 9735802 (Version 2)
Quarter: 2014Q1

REPORT INFORMATION
  Report Type: Spontaneous
  Country: GB (occurrence: GB)
  Receive Date: 20131206
  Receipt Date: 20140203
  Transmission Date: 20141002
  Serious: Yes (Hospitalization)
  Sender: FDA-Public Use
  Company Number: GB-ELI_LILLY_AND_COMPANY-GB201311008358

PATIENT
  Age: 65 Year
  Sex: Male

DRUGS (1)
  1. HUMALOG LISPRO [Suspect]
     Indication: DIABETES MELLITUS
     Route: 065

REACTIONS (1)
  - Hyperglycaemia [Recovering/Resolving]
